FAERS Safety Report 10214411 (Version 1)
Quarter: 2014Q2

REPORT INFORMATION
  Report Type: Spontaneous
  Country: MA (occurrence: MA)
  Receive Date: 20140603
  Receipt Date: 20140603
  Transmission Date: 20141212
  Serious: Yes (Death, Hospitalization, Other)
  Sender: FDA-Public Use
  Company Number: MA-JNJFOC-20140516878

PATIENT
  Sex: 0

DRUGS (1)
  1. PARACETAMOL [Suspect]
     Indication: PRODUCT USED FOR UNKNOWN INDICATION
     Route: 065

REACTIONS (5)
  - Suicide attempt [Unknown]
  - Accidental exposure to product [Unknown]
  - Acute hepatic failure [Fatal]
  - Toxicity to various agents [Unknown]
  - Intentional overdose [Unknown]
